FAERS Safety Report 8698811 (Version 2)
Quarter: 2012Q4

REPORT INFORMATION
  Report Type: 
  Country: DE (occurrence: DE)
  Receive Date: 20120802
  Receipt Date: 20120831
  Transmission Date: 20130627
  Serious: Yes (Death, Life-Threatening, Hospitalization)
  Sender: FDA-Public Use
  Company Number: DE-SANOFI-AVENTIS-2012SA054242

PATIENT
  Age: 72 Year
  Sex: Male

DRUGS (7)
  1. MULTAQ [Suspect]
     Indication: DRUG USE FOR UNKNOWN INDICATION
     Route: 048
     Dates: start: 201009, end: 201203
  2. MARCUMAR [Concomitant]
  3. METOPROLOL [Concomitant]
  4. LISINOPRIL [Concomitant]
  5. ALLOPURINOL [Concomitant]
  6. TORASEMIDE [Concomitant]
  7. ACETYLDIGOXIN [Concomitant]

REACTIONS (3)
  - Hepatic failure [Fatal]
  - Circulatory collapse [Fatal]
  - Alanine aminotransferase increased [Fatal]
